FAERS Safety Report 14760703 (Version 1)
Quarter: 2018Q2

REPORT INFORMATION
  Report Type: Report from Study
  Country: US (occurrence: US)
  Receive Date: 20180414
  Receipt Date: 20180414
  Transmission Date: 20180711
  Serious: Yes (Death, Hospitalization)
  Sender: FDA-Public Use
  Company Number: US-JNJFOC-20180407413

PATIENT
  Age: 39 Year
  Sex: Male

DRUGS (2)
  1. TYLENOL 8HR [Suspect]
     Active Substance: ACETAMINOPHEN
     Indication: PRODUCT USED FOR UNKNOWN INDICATION
     Dosage: 4-6 ACETAMINOPHEN 650MG EARLIER IN THE DAY
     Route: 048
  2. TYLENOL 8HR [Suspect]
     Active Substance: ACETAMINOPHEN
     Route: 048

REACTIONS (11)
  - Nausea [Fatal]
  - Vomiting [Fatal]
  - Ammonia increased [Fatal]
  - Blood creatinine increased [Fatal]
  - Somnolence [Fatal]
  - Toxicity to various agents [Fatal]
  - Migraine [Fatal]
  - Transaminases increased [Fatal]
  - International normalised ratio increased [Fatal]
  - Intentional product misuse [Fatal]
  - Hypotension [Fatal]
